FAERS Safety Report 15002583 (Version 1)
Quarter: 2018Q2

REPORT INFORMATION
  Report Type: Spontaneous
  Country: US (occurrence: US)
  Receive Date: 20180612
  Receipt Date: 20180612
  Transmission Date: 20180711
  Serious: No
  Sender: FDA-Public Use
  Company Number: US-BAYER-2018-108766

PATIENT
  Age: 75 Year
  Sex: Male

DRUGS (1)
  1. STAXYN [Suspect]
     Active Substance: VARDENAFIL HYDROCHLORIDE TRIHYDRATE
     Dosage: 10 MG, UNK
     Route: 048
     Dates: start: 20180606

REACTIONS (1)
  - Dizziness [None]

NARRATIVE: CASE EVENT DATE: 20180606
